FAERS Safety Report 25228172 (Version 2)
Quarter: 2025Q2

REPORT INFORMATION
  Report Type: Spontaneous
  Country: JP (occurrence: JP)
  Receive Date: 20250423
  Receipt Date: 20250510
  Transmission Date: 20250716
  Serious: No
  Sender: AMGEN
  Company Number: JP-KYOWAKIRIN-2025KK006973

PATIENT
  Age: 67 Year
  Sex: Male

DRUGS (2)
  1. DARBEPOETIN ALFA [Suspect]
     Active Substance: DARBEPOETIN ALFA
     Indication: Nephrogenic anaemia
     Dosage: UNK, 1X/WEEK
     Route: 042
  2. EVOCALCET [Suspect]
     Active Substance: EVOCALCET
     Indication: Hyperparathyroidism secondary
     Dosage: 1 MG, QD
     Route: 048
     Dates: start: 20250312, end: 20250317

REACTIONS (1)
  - No adverse event [Unknown]
